FAERS Safety Report 4948767-8 (Version None)
Quarter: 2006Q1

REPORT INFORMATION
  Report Type: 
  Country: None (occurrence: None)
  Receive Date: 20060321
  Receipt Date: 20060309
  Transmission Date: 20060701
  Serious: Yes (Other)
  Sender: FDA-Public Use
  Company Number: JP-JNJFOC-20050505317

PATIENT
  Sex: Male
  Weight: 62 kg

DRUGS (27)
  1. REMICADE [Suspect]
     Route: 042
  2. REMICADE [Suspect]
     Dosage: 5 INFUSIONS ON UNKNOWN DATES
     Route: 042
  3. REMICADE [Suspect]
     Route: 042
  4. REMICADE [Suspect]
     Route: 042
  5. REMICADE [Suspect]
     Route: 042
  6. REMICADE [Suspect]
     Route: 042
  7. REMICADE [Suspect]
     Route: 042
  8. REMICADE [Suspect]
     Indication: RHEUMATOID ARTHRITIS
     Route: 042
  9. STEROID [Suspect]
     Indication: DRUG USE FOR UNKNOWN INDICATION
  10. HYPEN [Suspect]
     Indication: RHEUMATOID ARTHRITIS
     Route: 048
  11. FOLIAMIN [Suspect]
     Indication: FOLATE DEFICIENCY
     Route: 048
  12. CYTOTEC [Suspect]
     Route: 048
  13. CYTOTEC [Suspect]
     Route: 048
  14. SELBEX [Suspect]
     Route: 048
  15. NU-LOTAN [Suspect]
     Route: 048
  16. NU-LOTAN [Suspect]
     Indication: HYPERTENSION
     Route: 048
  17. PREDONINE [Suspect]
     Route: 048
  18. PREDONINE [Suspect]
     Indication: RHEUMATOID ARTHRITIS
     Route: 048
  19. METHOTREXATE [Suspect]
     Route: 048
  20. METHOTREXATE [Suspect]
     Indication: RHEUMATOID ARTHRITIS
     Route: 048
  21. RIMATIL [Concomitant]
     Indication: RHEUMATOID ARTHRITIS
     Route: 048
  22. GASTER-D [Concomitant]
     Route: 048
  23. PROCYCLIN [Concomitant]
     Route: 048
  24. ITRIZOL [Concomitant]
     Route: 048
  25. NIZORAL [Concomitant]
     Route: 061
  26. IDOMETHINE [Concomitant]
     Route: 061
  27. ADOFEED [Concomitant]
     Route: 061

REACTIONS (8)
  - BLOOD CREATINE PHOSPHOKINASE INCREASED [None]
  - DYSPHONIA [None]
  - EYELID OEDEMA [None]
  - FACE OEDEMA [None]
  - FEMUR FRACTURE [None]
  - HYPOTHYROIDISM [None]
  - INSOMNIA [None]
  - OEDEMA [None]
